FAERS Safety Report 9492615 (Version 1)
Quarter: 2013Q3

REPORT INFORMATION
  Report Type: Spontaneous
  Country: TR (occurrence: TR)
  Receive Date: 20130830
  Receipt Date: 20130830
  Transmission Date: 20140515
  Serious: Yes (Death)
  Sender: FDA-Public Use
  Company Number: PHHY2013TR094235

PATIENT
  Age: 11 Year
  Sex: Female

DRUGS (2)
  1. VALPROIC ACID [Suspect]
     Indication: LEUKOCYTOSIS
     Dosage: 10 MG/KG, DAILY
  2. VALPROIC ACID [Suspect]
     Indication: OFF LABEL USE
     Dosage: 20 MG/KG, DAILY

REACTIONS (2)
  - Sepsis [Fatal]
  - Multi-organ failure [Fatal]
